FAERS Safety Report 9989315 (Version 1)
Quarter: 2014Q1

REPORT INFORMATION
  Report Type: Spontaneous
  Country: US (occurrence: US)
  Receive Date: 20140310
  Receipt Date: 20140310
  Transmission Date: 20141002
  Serious: Yes (Hospitalization)
  Sender: FDA-Public Use
  Company Number: US-BAYER-2014-034447

PATIENT
  Age: 21 Year
  Sex: Female
  Weight: 70.75 kg

DRUGS (2)
  1. GIANVI [Suspect]
  2. YAZ [Suspect]

REACTIONS (1)
  - Pulmonary embolism [None]
